FAERS Safety Report 10048334 (Version 1)
Quarter: 2014Q1

REPORT INFORMATION
  Report Type: Spontaneous
  Country: BR (occurrence: BR)
  Receive Date: 20140331
  Receipt Date: 20140331
  Transmission Date: 20141002
  Serious: Yes (Death, Hospitalization)
  Sender: FDA-Public Use
  Company Number: BR-GLAXOSMITHKLINE-A1067239A

PATIENT
  Sex: Male

DRUGS (6)
  1. FOLIC ACID [Concomitant]
     Indication: NEPHROPATHY
     Dosage: 1TAB PER DAY
     Route: 065
  2. B COMPLEX [Concomitant]
     Indication: NEPHROPATHY
     Dosage: 2TAB PER DAY
     Route: 065
  3. IRON POLYMALTOSE COMPLEX [Concomitant]
     Indication: NEPHROPATHY
     Route: 030
  4. VITAMIN B [Concomitant]
     Indication: NEPHROPATHY
     Dosage: 15DROP WEEKLY
     Route: 048
  5. ERYTHROPOIETIN [Concomitant]
     Indication: NEPHROPATHY
     Route: 058
  6. AVODART [Suspect]
     Indication: BENIGN PROSTATIC HYPERPLASIA
     Dosage: .5MG PER DAY
     Route: 048

REACTIONS (4)
  - Septic shock [Fatal]
  - Abdominal sepsis [Fatal]
  - Renal failure acute [Fatal]
  - Gastroenteritis [Fatal]
